FAERS Safety Report 7967689 (Version 3)
Quarter: 2013Q1

REPORT INFORMATION
  Report Type: Spontaneous
  Country: US (occurrence: US)
  Receive Date: 20110531
  Receipt Date: 20130221
  Transmission Date: 20140127
  Serious: No
  Sender: FDA-Public Use
  Company Number: US-ASTRAZENECA-2011SE30831

PATIENT
  Age: 58 Year
  Sex: Female

DRUGS (2)
  1. CRESTOR [Suspect]
     Route: 048
  2. METFORMIN [Suspect]
     Route: 048

REACTIONS (4)
  - Nasopharyngitis [Unknown]
  - Blood cholesterol increased [Unknown]
  - Abdominal discomfort [Recovered/Resolved]
  - Drug ineffective [Unknown]
